FAERS Safety Report 6608350-5 (Version None)
Quarter: 2010Q1

REPORT INFORMATION
  Report Type: 
  Country: None (occurrence: None)
  Receive Date: 20100301
  Receipt Date: 20100222
  Transmission Date: 20100710
  Serious: Yes (Hospitalization)
  Sender: FDA-Public Use
  Company Number: AT-BRISTOL-MYERS SQUIBB COMPANY-14987564

PATIENT
  Age: 26 Year
  Sex: Female
  Weight: 54 kg

DRUGS (2)
  1. ABILIFY [Suspect]
     Indication: MOOD SWINGS
     Dosage: DOSAGE:1/4 EVERY 2ND DAY,5TH DAY1/2.STOP DATE:05NOV09,PREVIOUS DOSE:2.5MG
     Route: 048
     Dates: start: 20091013
  2. TRITTICO RETARD [Concomitant]
     Dosage: DOSE VALUE:: 0-0-2/3.FORMULATION:TAB.

REACTIONS (2)
  - EXTRAPYRAMIDAL DISORDER [None]
  - HYPOAESTHESIA [None]
